FAERS Safety Report 13034758 (Version 1)
Quarter: 2016Q4

REPORT INFORMATION
  Report Type: Spontaneous
  Country: ES (occurrence: ES)
  Receive Date: 20161216
  Receipt Date: 20161216
  Transmission Date: 20170207
  Serious: Yes (Other)
  Sender: FDA-Public Use
  Company Number: ES-JNJFOC-20161213992

PATIENT
  Age: 43 Year
  Sex: Male

DRUGS (5)
  1. DEXRAZOXANE. [Suspect]
     Active Substance: DEXRAZOXANE
     Indication: SYNOVIAL SARCOMA
     Route: 065
     Dates: start: 200802, end: 200804
  2. IFOSFAMIDE. [Suspect]
     Active Substance: IFOSFAMIDE
     Indication: SYNOVIAL SARCOMA
     Route: 065
     Dates: start: 199612, end: 199705
  3. IFOSFAMIDE. [Suspect]
     Active Substance: IFOSFAMIDE
     Indication: SYNOVIAL SARCOMA
     Route: 065
     Dates: start: 200802, end: 200804
  4. DOXORUBICIN [Suspect]
     Active Substance: DOXORUBICIN
     Indication: SYNOVIAL SARCOMA
     Route: 065
     Dates: start: 199612, end: 199705
  5. DOXORUBICIN [Suspect]
     Active Substance: DOXORUBICIN
     Indication: SYNOVIAL SARCOMA
     Route: 065
     Dates: start: 200802, end: 200804

REACTIONS (3)
  - Product use issue [Unknown]
  - Off label use [Unknown]
  - Seizure [Unknown]

NARRATIVE: CASE EVENT DATE: 200804
